FAERS Safety Report 10216579 (Version 1)
Quarter: 2014Q2

REPORT INFORMATION
  Report Type: Spontaneous
  Country: IT (occurrence: IT)
  Receive Date: 20140604
  Receipt Date: 20140604
  Transmission Date: 20141212
  Serious: Yes (Hospitalization, Other)
  Sender: FDA-Public Use
  Company Number: IT-TEVA-484491ISR

PATIENT
  Age: 27 Year
  Sex: Male

DRUGS (3)
  1. CARBOLITHIUM 300 MG [Suspect]
     Indication: INTENTIONAL SELF-INJURY
     Dosage: 5 DOSAGE FORMS DAILY;
     Route: 048
     Dates: start: 20140519, end: 20140519
  2. ZOLOFT 50 MG COMPRESSE RIVESTITE CON FILM [Suspect]
     Indication: INTENTIONAL SELF-INJURY
     Dosage: 5 DOSAGE FORMS DAILY;
     Route: 048
     Dates: start: 20140519, end: 20140519
  3. SEROQUEL 150 MG [Suspect]
     Indication: INTENTIONAL SELF-INJURY
     Dosage: 20 DOSAGE FORMS DAILY;
     Route: 048
     Dates: start: 20140519, end: 20140519

REACTIONS (3)
  - Drug abuse [Recovering/Resolving]
  - Sopor [Recovering/Resolving]
  - Intentional self-injury [Recovering/Resolving]
